FAERS Safety Report 9249273 (Version 1)
Quarter: 2013Q1

REPORT INFORMATION
  Report Type: Spontaneous
  Country: US (occurrence: None)
  Receive Date: 20130305
  Receipt Date: 20130305
  Transmission Date: 20140127
  Serious: Yes (Other)
  Sender: FDA-Public Use
  Company Number: 163-21880-12093135

PATIENT
  Age: 67 Year
  Sex: Male

DRUGS (4)
  1. REVLIMID [Suspect]
     Indication: MYELODYSPLASTIC SYNDROME
     Dosage: 28 IN 28 D
     Route: 048
     Dates: start: 20120806
  2. ASPIRIN (ACETYLSALICYLIC ACID) [Concomitant]
  3. ALLOPURINOL [Concomitant]
  4. RANITIDINE HCL (RANITIDINE HYDROCHLORIDE) [Concomitant]

REACTIONS (2)
  - Muscle spasms [None]
  - Dyspnoea exertional [None]
